FAERS Safety Report 18103946 (Version 4)
Quarter: 2020Q4

REPORT INFORMATION
  Report Type: Spontaneous
  Country: US (occurrence: US)
  Receive Date: 20200803
  Receipt Date: 20201026
  Transmission Date: 20210113
  Serious: Yes (Other)
  Sender: FDA-Public Use
  Company Number: US-TEVA-2020-US-1810882

PATIENT
  Age: 74 Year
  Sex: Male

DRUGS (11)
  1. AMLODIPINE [Concomitant]
     Active Substance: AMLODIPINE BESYLATE
  2. PANTOPRAZOLE [Concomitant]
     Active Substance: PANTOPRAZOLE
  3. CARVEDILOL. [Concomitant]
     Active Substance: CARVEDILOL
  4. ISOSORBIDE. [Concomitant]
     Active Substance: ISOSORBIDE
  5. MORPHINE [Concomitant]
     Active Substance: MORPHINE
  6. HYDROCODONE BITARTRATE AND ACETAMINOPHEN [Suspect]
     Active Substance: ACETAMINOPHEN\HYDROCODONE BITARTRATE
     Dosage: STDEAFM4460933; 10/325 3XDAY
     Route: 065
  7. HYDROMORPHONE ER [Suspect]
     Active Substance: HYDROMORPHONE HYDROCHLORIDE
     Dosage: 8 MILLIGRAM DAILY; EXTENDED RELEASE; 8 MG TAB/ DAY
     Route: 065
  8. CLOPIDOGREL [Concomitant]
     Active Substance: CLOPIDOGREL BISULFATE
  9. PRAVASTATIN. [Concomitant]
     Active Substance: PRAVASTATIN
  10. LOSARTAN. [Concomitant]
     Active Substance: LOSARTAN
  11. CLONIDINE. [Concomitant]
     Active Substance: CLONIDINE

REACTIONS (9)
  - Spinal operation [Unknown]
  - Sleep disorder [Unknown]
  - Depression [Unknown]
  - Pain [Unknown]
  - Surgery [Unknown]
  - Sexual dysfunction [Unknown]
  - Drug dependence [Not Recovered/Not Resolved]
  - Neck surgery [Unknown]
  - Myocardial infarction [Unknown]
